FAERS Safety Report 10216356 (Version 1)
Quarter: 2014Q2

REPORT INFORMATION
  Report Type: Spontaneous
  Country: US (occurrence: None)
  Receive Date: 20140603
  Receipt Date: 20140603
  Transmission Date: 20141212
  Serious: Yes (Life-Threatening)
  Sender: FDA-Public Use
  Company Number: None

PATIENT
  Age: 80 Year
  Sex: Male
  Weight: 58.51 kg

DRUGS (1)
  1. CEFEPIME 2 GR. [Suspect]
     Indication: INFECTION
     Dosage: TWICE DAILY, INTO A VEIN
     Route: 042
     Dates: start: 20140510, end: 20140510

REACTIONS (8)
  - Convulsion [None]
  - Status epilepticus [None]
  - Medical observation abnormal [None]
  - Altered state of consciousness [None]
  - Brain injury [None]
  - Movement disorder [None]
  - Speech disorder [None]
  - Dysphagia [None]
